FAERS Safety Report 21419414 (Version 2)
Quarter: 2022Q4

REPORT INFORMATION
  Report Type: Report from Study
  Country: IN (occurrence: IN)
  Receive Date: 20221006
  Receipt Date: 20221021
  Transmission Date: 20230113
  Serious: Yes (Hospitalization)
  Sender: FDA-Public Use
  Company Number: IN-BRISTOL-MYERS SQUIBB COMPANY-2022-114486

PATIENT
  Age: 61 Year
  Sex: Female
  Weight: 55 kg

DRUGS (5)
  1. TAB VIDAGLAPTIN [Concomitant]
     Indication: Product used for unknown indication
     Route: 048
     Dates: start: 20210101
  2. TAB TAZLOC [Concomitant]
     Indication: Product used for unknown indication
     Route: 048
     Dates: start: 20220703
  3. LEVOTHYROXINE [Concomitant]
     Active Substance: LEVOTHYROXINE
     Indication: Hypothyroidism
     Route: 048
     Dates: start: 20220905
  4. COVISHIELD [Concomitant]
     Indication: Prophylaxis
     Route: 030
     Dates: start: 20210531
  5. COVISHIELD [Concomitant]
     Route: 030
     Dates: start: 20210707

REACTIONS (1)
  - Gastroenteritis [Recovered/Resolved]

NARRATIVE: CASE EVENT DATE: 20220927
